FAERS Safety Report 10019849 (Version 1)
Quarter: 2014Q1

REPORT INFORMATION
  Report Type: Spontaneous
  Country: US (occurrence: US)
  Receive Date: 20140318
  Receipt Date: 20140318
  Transmission Date: 20141002
  Serious: No
  Sender: FDA-Public Use
  Company Number: US-GALDERMA-US14000016

PATIENT
  Age: 48 Year
  Sex: Male

DRUGS (3)
  1. MIRVASO (BRIMONIDINE) TOPICAL GEL, 0.33% [Suspect]
     Indication: ROSACEA
     Dosage: 0.33%
     Route: 061
     Dates: start: 20131219
  2. METROGEL (METRONIDAZOLE) GEL [Concomitant]
     Indication: ROSACEA
     Route: 061
  3. SODIUM SULFACETAMIDE [Concomitant]
     Indication: DERMATITIS
     Route: 061

REACTIONS (5)
  - Condition aggravated [Recovered/Resolved]
  - Nausea [Recovered/Resolved]
  - Cold sweat [Recovered/Resolved]
  - Paraesthesia [Recovered/Resolved]
  - Drug effect decreased [Recovered/Resolved]
